FAERS Safety Report 7177102-2 (Version None)
Quarter: 2010Q4

REPORT INFORMATION
  Report Type: 
  Country: None (occurrence: None)
  Receive Date: 20101220
  Receipt Date: 20101207
  Transmission Date: 20110411
  Serious: Yes (Other)
  Sender: FDA-Public Use
  Company Number: PHHY2010US71507

PATIENT
  Sex: Female
  Weight: 54.422 kg

DRUGS (1)
  1. FEMARA [Suspect]
     Indication: BREAST NEOPLASM
     Dosage: 2.5 MG DAILY
     Route: 048
     Dates: start: 20101018

REACTIONS (1)
  - HIP ARTHROPLASTY [None]
